FAERS Safety Report 5272750-9 (Version None)
Quarter: 2007Q1

REPORT INFORMATION
  Report Type: 
  Country: None (occurrence: None)
  Receive Date: 20070322
  Receipt Date: 20070319
  Transmission Date: 20070707
  Serious: Yes (Hospitalization)
  Sender: FDA-Public Use
  Company Number: US-GLAXOSMITHKLINE-A0643714A

PATIENT
  Age: 65 Year
  Sex: Male

DRUGS (6)
  1. ADVAIR DISKUS 100/50 [Suspect]
     Indication: CHRONIC OBSTRUCTIVE PULMONARY DISEASE
     Dosage: 1PUFF TWICE PER DAY
     Route: 055
     Dates: start: 20060101, end: 20070319
  2. LOTREL [Concomitant]
  3. LOPRESSOR [Concomitant]
  4. PERPHENAZINE [Concomitant]
  5. KLONOPIN [Concomitant]
  6. OMEPRAZOLE [Concomitant]

REACTIONS (2)
  - ARRHYTHMIA [None]
  - ORAL MUCOSAL DISORDER [None]
